FAERS Safety Report 10032911 (Version 1)
Quarter: 2014Q1

REPORT INFORMATION
  Report Type: Spontaneous
  Country: US (occurrence: US)
  Receive Date: 20140324
  Receipt Date: 20140324
  Transmission Date: 20141002
  Serious: Yes (Other)
  Sender: FDA-Public Use
  Company Number: US-PFIZER INC-2014083410

PATIENT
  Age: 78 Year
  Sex: Female
  Weight: 55.78 kg

DRUGS (1)
  1. CLINDAMYCIN HCL [Suspect]
     Indication: GINGIVITIS
     Dosage: UNK
     Route: 048
     Dates: start: 201309, end: 201309

REACTIONS (1)
  - Clostridium difficile infection [Not Recovered/Not Resolved]
